FAERS Safety Report 6269630-9 (Version None)
Quarter: 2009Q3

REPORT INFORMATION
  Report Type: 
  Country: None (occurrence: None)
  Receive Date: 20090714
  Receipt Date: 20090702
  Transmission Date: 20100115
  Serious: Yes (Death)
  Sender: FDA-Public Use
  Company Number: 2009AL002547

PATIENT
  Age: 65 Year
  Sex: Female
  Weight: 70.3075 kg

DRUGS (17)
  1. DIGOXIN [Suspect]
     Dosage: 0.25MG, DAILY, PO
     Route: 048
     Dates: start: 20050101, end: 20090102
  2. MONOPRIL [Concomitant]
  3. HYDROXYUREA [Concomitant]
  4. COUMADIN [Concomitant]
  5. FOSINOPRIL SODIUM [Concomitant]
  6. SPORANOX [Concomitant]
  7. FUROSEMIDE [Concomitant]
  8. GLYBURIDE [Concomitant]
  9. ASCENSIA [Concomitant]
  10. ISOSORBIDE [Concomitant]
  11. SPIRONOLACTONE [Concomitant]
  12. COREG [Concomitant]
  13. FOSAMAX [Concomitant]
  14. NITROGLYCERIN [Concomitant]
  15. SIMVASTATIN [Concomitant]
  16. CARVEDILOL [Concomitant]
  17. NEXIUM [Concomitant]

REACTIONS (5)
  - ATRIAL FIBRILLATION [None]
  - ECONOMIC PROBLEM [None]
  - HYPERTENSION [None]
  - INJURY [None]
  - UNEVALUABLE EVENT [None]
